FAERS Safety Report 7459827-4 (Version None)
Quarter: 2011Q2

REPORT INFORMATION
  Report Type: 
  Country: None (occurrence: None)
  Receive Date: 20110504
  Receipt Date: 20110504
  Transmission Date: 20111010
  Serious: Yes (Life-Threatening, Hospitalization)
  Sender: FDA-Public Use
  Company Number: None

PATIENT
  Age: 71 Year
  Sex: Male
  Weight: 78.0187 kg

DRUGS (1)
  1. MYCOPHENOLATE MOFETIL (CELLCEPT) [Suspect]
     Indication: RENAL TRANSPLANT
     Dosage: 1 TABLET TWICE DAILY PO
     Route: 048
     Dates: start: 20110304, end: 20110503

REACTIONS (3)
  - WEIGHT DECREASED [None]
  - COGNITIVE DISORDER [None]
  - CONFUSIONAL STATE [None]
